FAERS Safety Report 9115706 (Version 1)
Quarter: 2013Q1

REPORT INFORMATION
  Report Type: Report from Study
  Country: CZ (occurrence: CZ)
  Receive Date: 20130225
  Receipt Date: 20130225
  Transmission Date: 20140127
  Serious: Yes (Hospitalization)
  Sender: FDA-Public Use
  Company Number: CZ-BAXTER-2013BAX006679

PATIENT
  Age: 73 Year
  Sex: Male
  Weight: 76 kg

DRUGS (23)
  1. ENDOXAN 1G [Suspect]
     Indication: DIFFUSE LARGE B-CELL LYMPHOMA
     Route: 042
     Dates: start: 20120911
  2. ENDOXAN 1G [Suspect]
     Route: 042
     Dates: start: 20121205
  3. DOXORUBICIN [Suspect]
     Indication: DIFFUSE LARGE B-CELL LYMPHOMA
     Route: 042
     Dates: start: 20120911
  4. DOXORUBICIN [Suspect]
     Route: 042
     Dates: start: 20121205
  5. VINCRISTINE [Suspect]
     Indication: DIFFUSE LARGE B-CELL LYMPHOMA
     Route: 040
     Dates: start: 20120911
  6. VINCRISTINE [Suspect]
     Route: 040
     Dates: start: 20121205
  7. PREDNISONE [Suspect]
     Indication: DIFFUSE LARGE B-CELL LYMPHOMA
     Route: 048
     Dates: start: 20120911
  8. PREDNISONE [Suspect]
     Route: 048
     Dates: start: 20121209
  9. THEOPLUS [Concomitant]
     Indication: CHRONIC OBSTRUCTIVE PULMONARY DISEASE
     Route: 065
  10. EMANERA [Concomitant]
     Indication: PROPHYLAXIS
     Route: 065
  11. TAMSULOSIN [Concomitant]
     Indication: BENIGN PROSTATIC HYPERPLASIA
     Route: 065
  12. ONDANSETRON [Concomitant]
     Indication: PROPHYLAXIS
     Route: 065
     Dates: start: 20120911
  13. PARALEN [Concomitant]
     Indication: PROPHYLAXIS
     Route: 065
     Dates: start: 20120911
  14. DITHIADEN [Concomitant]
     Indication: PROPHYLAXIS
     Route: 065
     Dates: start: 20120911
  15. KALNORMIN [Concomitant]
     Indication: PROPHYLAXIS
     Route: 065
     Dates: start: 20120913
  16. STILNOX [Concomitant]
     Indication: INSOMNIA
     Route: 065
     Dates: start: 20120918
  17. MALTOFER [Concomitant]
     Indication: IRON DEFICIENCY
     Route: 065
     Dates: start: 20120925
  18. DEGAN [Concomitant]
     Indication: NAUSEA
     Route: 065
     Dates: start: 20121016
  19. EMEND [Concomitant]
     Indication: NAUSEA
     Route: 065
     Dates: start: 20121114
  20. HERPESIN [Concomitant]
     Indication: HERPES ZOSTER
     Route: 065
     Dates: start: 20121231, end: 20130106
  21. HERPESIN [Concomitant]
     Route: 065
     Dates: start: 20130109
  22. KLACID [Concomitant]
     Indication: UPPER RESPIRATORY TRACT INFECTION
     Route: 065
     Dates: start: 20130102
  23. COTRIMOXAZOLE [Concomitant]
     Indication: PNEUMOCYSTIS JIROVECII INFECTION
     Route: 065
     Dates: start: 20130109

REACTIONS (1)
  - Pneumonia [Recovering/Resolving]
